FAERS Safety Report 4649786-1 (Version None)
Quarter: 2005Q2

REPORT INFORMATION
  Report Type: 
  Country: None (occurrence: None)
  Receive Date: 20050428
  Receipt Date: 20050428
  Transmission Date: 20051028
  Serious: Yes (Other)
  Sender: FDA-Public Use
  Company Number: None

PATIENT
  Age: 68 Year
  Sex: Male
  Weight: 95.2554 kg

DRUGS (11)
  1. VIAGRA [Suspect]
     Indication: ERECTILE DYSFUNCTION
     Dosage: 1 BY MOUTH DAILY AS NEEDED
     Route: 048
     Dates: start: 20020401
  2. XALATAN [Concomitant]
  3. BETIMOL [Concomitant]
  4. TRICOR [Concomitant]
  5. ACTOS [Concomitant]
  6. INDERIDE-40/25 [Concomitant]
  7. AMARYL [Concomitant]
  8. LORAZEPAM [Concomitant]
  9. INDOCIN [Concomitant]
  10. GLYBURIDE [Concomitant]
  11. METFORMIN [Concomitant]

REACTIONS (2)
  - DRUG INEFFECTIVE [None]
  - PHARMACEUTICAL PRODUCT COMPLAINT [None]
